FAERS Safety Report 16191880 (Version 1)
Quarter: 2019Q2

REPORT INFORMATION
  Report Type: Spontaneous
  Country: US (occurrence: US)
  Receive Date: 20190412
  Receipt Date: 20190412
  Transmission Date: 20190711
  Serious: Yes (Hospitalization, Other)
  Sender: FDA-Public Use
  Company Number: US-SUNOVION-2019SUN001453

PATIENT
  Age: 72 Year
  Sex: Female

DRUGS (8)
  1. LATUDA [Suspect]
     Active Substance: LURASIDONE HYDROCHLORIDE
     Dosage: 20 MG, QD
     Route: 048
     Dates: start: 20140215, end: 20140218
  2. TOPIRAMATE. [Concomitant]
     Active Substance: TOPIRAMATE
  3. ZIPRASIDONE. [Concomitant]
     Active Substance: ZIPRASIDONE
     Dosage: 40 MG, BID
  4. ARIPIPRAZOLE. [Concomitant]
     Active Substance: ARIPIPRAZOLE
     Dosage: 4 MG
  5. LATUDA [Suspect]
     Active Substance: LURASIDONE HYDROCHLORIDE
     Dosage: 40 MG, QD
     Route: 048
     Dates: start: 20140205, end: 20140214
  6. LATUDA [Suspect]
     Active Substance: LURASIDONE HYDROCHLORIDE
     Dosage: 40 MG, QD
     Route: 048
     Dates: start: 20140219, end: 20140302
  7. LATUDA [Suspect]
     Active Substance: LURASIDONE HYDROCHLORIDE
     Dosage: 20 MG, QD
     Route: 048
     Dates: start: 20140303, end: 20140308
  8. LATUDA [Suspect]
     Active Substance: LURASIDONE HYDROCHLORIDE
     Indication: SCHIZOAFFECTIVE DISORDER
     Dosage: 20 MG, QD
     Route: 048
     Dates: start: 20140127, end: 20140204

REACTIONS (10)
  - Rash erythematous [Recovered/Resolved]
  - Tremor [Recovered/Resolved]
  - Pneumonia [Unknown]
  - Rash maculo-papular [Recovered/Resolved]
  - Parkinsonism [Recovered/Resolved]
  - Mental status changes [Unknown]
  - Rash [Recovered/Resolved]
  - Sepsis [Unknown]
  - Rash pruritic [Recovered/Resolved]
  - Off label use [Unknown]
